FAERS Safety Report 7615794-1 (Version None)
Quarter: 2011Q3

REPORT INFORMATION
  Report Type: 
  Country: None (occurrence: None)
  Receive Date: 20110715
  Receipt Date: 20110715
  Transmission Date: 20111222
  Serious: No
  Sender: FDA-Public Use
  Company Number: None

PATIENT
  Age: 79 Year
  Sex: Male
  Weight: 85.9 kg

DRUGS (1)
  1. DABIGATRAN [Suspect]
     Dosage: 150MG BID PO
     Route: 048
     Dates: start: 20110423, end: 20110615

REACTIONS (8)
  - RENAL FAILURE ACUTE [None]
  - DYSPNOEA [None]
  - ASPARTATE AMINOTRANSFERASE INCREASED [None]
  - LOWER GASTROINTESTINAL HAEMORRHAGE [None]
  - FAECES DISCOLOURED [None]
  - HEPATIC ENZYME INCREASED [None]
  - BLOOD ALBUMIN DECREASED [None]
  - ANAEMIA [None]
